FAERS Safety Report 8230280 (Version 2)
Quarter: 2013Q2

REPORT INFORMATION
  Report Type: Spontaneous
  Country: US (occurrence: US)
  Receive Date: 20111106
  Receipt Date: 20130404
  Transmission Date: 20140414
  Serious: No
  Sender: FDA-Public Use
  Company Number: US-AMGEN-USASP2011042418

PATIENT
  Age: 53 Year
  Sex: Female
  Weight: 122.45 kg

DRUGS (14)
  1. ENBREL [Suspect]
     Indication: PSORIASIS
     Dosage: 50 MG, 2 TIMES/WK
     Route: 058
  2. ENBREL [Suspect]
     Indication: PSORIATIC ARTHROPATHY
  3. ENBREL [Suspect]
     Indication: RHEUMATOID ARTHRITIS
  4. VOLTAREN-XR [Concomitant]
     Dosage: 100 MG, UNK
  5. METFORMIN [Concomitant]
     Dosage: 750 MG, UNK
  6. VITAMIN D /00107901/ [Concomitant]
     Dosage: 50000 UNIT, UNK
  7. BIOTIN [Concomitant]
     Dosage: 5000 UNK, UNK
  8. MELATONIN [Concomitant]
     Dosage: 10 MG, UNK
  9. BABY ASPIRIN [Concomitant]
     Dosage: 81 MG, UNK
  10. CLONAZEPAM [Concomitant]
     Dosage: 2 MG, UNK
  11. MECLIZINE                          /00072801/ [Concomitant]
     Dosage: 25 MG, UNK
  12. ALIGN [Concomitant]
     Dosage: 4 MG, UNK
  13. NUVIGIL [Concomitant]
     Dosage: 150 MG, UNK
  14. HYDROCHLOROTHIAZIDE W/TRIAMTERENE [Concomitant]
     Dosage: 25-50 MG

REACTIONS (1)
  - Tooth infection [Recovered/Resolved]
